FAERS Safety Report 6435403-7 (Version None)
Quarter: 2009Q4

REPORT INFORMATION
  Report Type: 
  Country: None (occurrence: None)
  Receive Date: 20091106
  Receipt Date: 20091027
  Transmission Date: 20100525
  Serious: Yes (Other)
  Sender: FDA-Public Use
  Company Number: 232428J09USA

PATIENT
  Age: 50 Year
  Sex: Male

DRUGS (6)
  1. REBIF [Suspect]
     Indication: MULTIPLE SCLEROSIS
     Dosage: 44 MCG, 3 IN 1 WEEKS, SUBCUTANEOUS
     Route: 058
     Dates: start: 20070924
  2. REMERON [Concomitant]
  3. ASPIRIN [Concomitant]
  4. MULTIVITAMIN (MULTIVITAMIN /00831701/) [Concomitant]
  5. VITAMIN E(TOCOPHEROL /00110501/) [Concomitant]
  6. LOPID [Concomitant]

REACTIONS (2)
  - NEPHROLITHIASIS [None]
  - PARATHYROID TUMOUR [None]
